FAERS Safety Report 5057204-7 (Version None)
Quarter: 2006Q3

REPORT INFORMATION
  Report Type: 
  Country: None (occurrence: None)
  Receive Date: 20060721
  Receipt Date: 20050609
  Transmission Date: 20061208
  Serious: No
  Sender: FDA-Public Use
  Company Number: US-GLAXOSMITHKLINE-A0562015A

PATIENT
  Sex: Female

DRUGS (6)
  1. AVANDIA [Suspect]
     Dosage: 4MG PER DAY
     Route: 048
  2. SECTRAL [Concomitant]
  3. AVAPRO [Concomitant]
  4. PRAVACHOL [Concomitant]
  5. EVISTA [Concomitant]
  6. ZETIA [Concomitant]

REACTIONS (2)
  - MYALGIA [None]
  - RHINORRHOEA [None]
